FAERS Safety Report 12459769 (Version 1)
Quarter: 2016Q2

REPORT INFORMATION
  Report Type: Spontaneous
  Country: US (occurrence: US)
  Receive Date: 20160613
  Receipt Date: 20160613
  Transmission Date: 20160815
  Serious: No
  Sender: FDA-Public Use
  Company Number: US-009507513-1606USA004058

PATIENT
  Sex: Male

DRUGS (2)
  1. RAGWITEK [Suspect]
     Active Substance: AMBROSIA ARTEMISIIFOLIA POLLEN
     Dosage: UNK
  2. RAGWITEK [Suspect]
     Active Substance: AMBROSIA ARTEMISIIFOLIA POLLEN
     Dosage: 12 AMB A 1-UNIT (AMB A 1-U), UNKNOWN
     Route: 060
     Dates: start: 2016, end: 2016

REACTIONS (2)
  - Ear pruritus [Unknown]
  - Tongue pruritus [Unknown]

NARRATIVE: CASE EVENT DATE: 2016
